FAERS Safety Report 16476554 (Version 1)
Quarter: 2019Q2

REPORT INFORMATION
  Report Type: Report from Study
  Country: JP (occurrence: JP)
  Receive Date: 20190626
  Receipt Date: 20190626
  Transmission Date: 20190711
  Serious: Yes (Hospitalization)
  Sender: FDA-Public Use
  Company Number: JP-ROCHE-2341929

PATIENT
  Age: 52 Year
  Sex: Female
  Weight: 53.9 kg

DRUGS (10)
  1. ADOAIR [Concomitant]
     Active Substance: FLUTICASONE PROPIONATE\SALMETEROL XINAFOATE
     Indication: ASTHMA
     Dosage: THE BEGINNING OF DOSAGE DAY: BEFORE ACQUIRING AGREEMENT
     Route: 055
  2. MEPTIN AIR [Concomitant]
     Active Substance: PROCATEROL HYDROCHLORIDE
     Indication: ASTHMA
     Dosage: THE USAGE: SINGLE USE AND BEGINNING OF DOSAGE DAY: BEFORE ACQUIRING AGREEMENT
     Route: 055
  3. DICLOFENAC NA [Concomitant]
     Active Substance: DICLOFENAC SODIUM
     Indication: ABDOMINAL PAIN
     Dosage: SINGLE USE
     Route: 054
     Dates: start: 20180927
  4. HALCION [Concomitant]
     Active Substance: TRIAZOLAM
     Indication: INSOMNIA
     Dosage: THE USAGE: SINGLE USE AND BEGINNING OF DOSAGE DAY: BEFORE ACQUIRING AGREEMENT
     Route: 048
  5. TOCILIZUMAB. [Suspect]
     Active Substance: TOCILIZUMAB
     Indication: FAMILIAL MEDITERRANEAN FEVER
     Route: 058
     Dates: start: 20180330, end: 20180914
  6. RESTAMIN [DIPHENHYDRAMINE] [Concomitant]
     Indication: PROPHYLAXIS
     Dosage: THE BEGINNING OF DOSAGE DAY: BEFORE ACQUIRING AGREEMENT
     Route: 048
  7. TOCILIZUMAB. [Suspect]
     Active Substance: TOCILIZUMAB
     Route: 058
     Dates: start: 20181011
  8. BISONO [Concomitant]
     Active Substance: BISOPROLOL
     Indication: HYPERTENSION
     Dosage: THE BEGINNING OF DOSAGE DAY: BEFORE ACQUIRING AGREEMENT
     Route: 061
  9. AIMIX [Concomitant]
     Active Substance: AMLODIPINE BESYLATE\IRBESARTAN
     Indication: HYPERTENSION
     Dosage: THE BEGINNING OF DOSAGE DAY: BEFORE ACQUIRING AGREEMENT
     Route: 048
  10. ZOLPIDEM TARTRATE. [Concomitant]
     Active Substance: ZOLPIDEM TARTRATE
     Indication: INSOMNIA
     Dosage: THE USAGE: SINGLE USE AND BEGINNING OF DOSAGE DAY: BEFORE ACQUIRING AGREEMENT
     Route: 048

REACTIONS (1)
  - Gastroenteritis eosinophilic [Not Recovered/Not Resolved]

NARRATIVE: CASE EVENT DATE: 20190408
